FAERS Safety Report 4429386-9 (Version None)
Quarter: 2004Q3

REPORT INFORMATION
  Report Type: 
  Country: None (occurrence: None)
  Receive Date: 20040817
  Receipt Date: 20040817
  Transmission Date: 20050211
  Serious: Yes (Other)
  Sender: FDA-Public Use
  Company Number: None

PATIENT
  Age: 69 Year
  Sex: Female

DRUGS (1)
  1. WARFARIN 5MG 1 PO QD [Suspect]
     Indication: ANTICOAGULANT THERAPY
     Dosage: 5MG PO
     Route: 048
     Dates: start: 19990101

REACTIONS (1)
  - INTERNATIONAL NORMALISED RATIO DECREASED [None]
